FAERS Safety Report 7023180-0 (Version None)
Quarter: 2010Q3

REPORT INFORMATION
  Report Type: 
  Country: None (occurrence: None)
  Receive Date: 20100930
  Receipt Date: 20100920
  Transmission Date: 20110219
  Serious: Yes (Hospitalization, Other)
  Sender: FDA-Public Use
  Company Number: US-ABBOTT-10P-163-0671970-00

PATIENT
  Sex: Female
  Weight: 46.308 kg

DRUGS (13)
  1. HUMIRA [Suspect]
     Indication: PRODUCT USED FOR UNKNOWN INDICATION
     Route: 058
     Dates: end: 20051201
  2. HUMIRA [Suspect]
     Route: 058
     Dates: end: 20100101
  3. HUMIRA [Suspect]
     Route: 058
     Dates: start: 20100901
  4. PENTASA [Concomitant]
     Indication: INTESTINAL FUNCTIONAL DISORDER
     Route: 048
     Dates: start: 20070101
  5. CITALOPRAM HYDROBROMIDE [Concomitant]
     Indication: ANXIETY
     Route: 048
  6. NEXIUM [Concomitant]
     Indication: GASTROOESOPHAGEAL REFLUX DISEASE
     Route: 048
  7. GABAPENTIN [Concomitant]
     Indication: PRODUCT USED FOR UNKNOWN INDICATION
     Route: 048
  8. MIRTAZAPINE [Concomitant]
     Indication: DEPRESSION
     Dosage: AT BEDTIME
     Route: 048
  9. PREDNISONE [Concomitant]
     Indication: RHEUMATOID ARTHRITIS
     Route: 048
  10. SIMVASTATIN [Concomitant]
     Indication: BLOOD CHOLESTEROL INCREASED
     Route: 048
  11. M.V.I. [Concomitant]
     Indication: VITAMIN SUPPLEMENTATION
     Route: 048
  12. COUMADIN [Concomitant]
     Indication: PRODUCT USED FOR UNKNOWN INDICATION
     Dosage: M,T,TH,R, F,SAT
     Route: 048
  13. COUMADIN [Concomitant]
     Dosage: WEDNESDAY AND SUNDAY
     Route: 048

REACTIONS (10)
  - ABDOMINAL PAIN [None]
  - APHAGIA [None]
  - CROHN'S DISEASE [None]
  - DIARRHOEA [None]
  - GASTROINTESTINAL ISCHAEMIA [None]
  - LARGE INTESTINE ANASTOMOSIS [None]
  - POLYP [None]
  - RECTAL HAEMORRHAGE [None]
  - TREMOR [None]
  - VOMITING [None]
